FAERS Safety Report 5856502-4 (Version None)
Quarter: 2008Q3

REPORT INFORMATION
  Report Type: 
  Country: None (occurrence: None)
  Receive Date: 20080825
  Receipt Date: 20080802
  Transmission Date: 20090109
  Serious: No
  Sender: FDA-Public Use
  Company Number: A0735597A

PATIENT
  Age: 63 Year
  Sex: Male

DRUGS (1)
  1. VERAMYST [Suspect]
     Indication: DRUG USE FOR UNKNOWN INDICATION
     Dosage: 2SPR TWICE PER DAY
     Route: 045
     Dates: start: 20080604

REACTIONS (2)
  - NASAL DISCOMFORT [None]
  - PHARMACEUTICAL PRODUCT COMPLAINT [None]
